FAERS Safety Report 25010243 (Version 1)
Quarter: 2025Q1

REPORT INFORMATION
  Report Type: Spontaneous
  Country: SK (occurrence: SK)
  Receive Date: 20250225
  Receipt Date: 20250225
  Transmission Date: 20250408
  Serious: Yes (Other)
  Sender: AMGEN
  Company Number: SK-AMGEN-SVKSP2025032610

PATIENT
  Sex: Female

DRUGS (1)
  1. PROLIA [Suspect]
     Active Substance: DENOSUMAB
     Indication: Product used for unknown indication
     Route: 065
     Dates: start: 202405

REACTIONS (2)
  - Angioedema [Unknown]
  - Swelling face [Unknown]

NARRATIVE: CASE EVENT DATE: 20250128
